FAERS Safety Report 4505932-1 (Version None)
Quarter: 2004Q4

REPORT INFORMATION
  Report Type: 
  Country: None (occurrence: None)
  Receive Date: 20041025
  Receipt Date: 20040525
  Transmission Date: 20050328
  Serious: Yes (Other)
  Sender: FDA-Public Use
  Company Number: US-JNJFOC-20040401196

PATIENT
  Age: 34 Year
  Sex: Male
  Weight: 74.8435 kg

DRUGS (6)
  1. REMICADE [Suspect]
     Indication: CROHN'S DISEASE
     Dosage: 400 MG INTRAVENOUS
     Route: 042
     Dates: start: 20040325
  2. IMURAN [Concomitant]
  3. PENTASA [Concomitant]
  4. PROZAC [Concomitant]
  5. VICODIN [Concomitant]
  6. PREDNISONE [Concomitant]

REACTIONS (3)
  - EPISTAXIS [None]
  - HEADACHE [None]
  - HYPERTENSION [None]
